FAERS Safety Report 6489196-8 (Version None)
Quarter: 2009Q4

REPORT INFORMATION
  Report Type: 
  Country: None (occurrence: None)
  Receive Date: 20091210
  Receipt Date: 20090928
  Transmission Date: 20100525
  Serious: No
  Sender: FDA-Public Use
  Company Number: US-AMGEN-KDL366587

PATIENT
  Sex: Female

DRUGS (2)
  1. ENBREL [Suspect]
     Indication: PSORIATIC ARTHROPATHY
     Route: 058
     Dates: start: 20090612
  2. ENBREL [Suspect]
     Indication: PSORIASIS

REACTIONS (6)
  - ACCIDENTAL EXPOSURE [None]
  - FATIGUE [None]
  - INJECTION SITE PAIN [None]
  - PSORIASIS [None]
  - PSORIATIC ARTHROPATHY [None]
  - SLUGGISHNESS [None]
